FAERS Safety Report 16414939 (Version 1)
Quarter: 2019Q2

REPORT INFORMATION
  Report Type: Spontaneous
  Country: CN (occurrence: CN)
  Receive Date: 20190611
  Receipt Date: 20190611
  Transmission Date: 20190711
  Serious: Yes (Other)
  Sender: FDA-Public Use
  Company Number: CN-ROCHE-2326254

PATIENT
  Age: 54 Year
  Sex: Male

DRUGS (9)
  1. FLUOROURACIL. [Concomitant]
     Active Substance: FLUOROURACIL
     Indication: ADENOCARCINOMA GASTRIC
     Dosage: DAY1
     Route: 041
     Dates: start: 20170316
  2. FLUOROURACIL. [Concomitant]
     Active Substance: FLUOROURACIL
     Route: 042
     Dates: start: 20170316
  3. CISPLATIN. [Concomitant]
     Active Substance: CISPLATIN
     Indication: ADENOCARCINOMA GASTRIC
     Dosage: DAY1 TO DAY2, 21 DAYS A CYCLE
     Route: 041
     Dates: start: 20170316
  4. HERCEPTIN [Suspect]
     Active Substance: TRASTUZUMAB
     Indication: ADENOCARCINOMA GASTRIC
     Route: 041
     Dates: start: 20170315
  5. GIMERACIL;OTERACIL POTASSIUM;TEGAFUR [Concomitant]
     Active Substance: GIMERACIL\OTERACIL\TEGAFUR
     Indication: ADENOCARCINOMA GASTRIC
     Dosage: DAY1 TO DAY14,Q21D/C
     Route: 048
     Dates: start: 20171221
  6. GIMERACIL;OTERACIL POTASSIUM;TEGAFUR [Concomitant]
     Active Substance: GIMERACIL\OTERACIL\TEGAFUR
     Dosage: DAY1 TO DAY14,Q21D/C
     Route: 048
     Dates: start: 20180328
  7. DOCETAXEL. [Concomitant]
     Active Substance: DOCETAXEL
     Dosage: DAY1,DAY8
     Route: 041
     Dates: start: 20180418
  8. DOCETAXEL. [Concomitant]
     Active Substance: DOCETAXEL
     Indication: ADENOCARCINOMA GASTRIC
     Dosage: DAY1
     Route: 041
     Dates: start: 20180328
  9. DOCETAXEL. [Concomitant]
     Active Substance: DOCETAXEL
     Dosage: DAY1,DAY8
     Route: 041
     Dates: start: 20180509

REACTIONS (4)
  - Chills [Recovering/Resolving]
  - Hypertension [Recovering/Resolving]
  - Bone marrow failure [Unknown]
  - Erythema [Recovering/Resolving]

NARRATIVE: CASE EVENT DATE: 20170315
